FAERS Safety Report 7630866-3 (Version None)
Quarter: 2011Q3

REPORT INFORMATION
  Report Type: 
  Country: None (occurrence: None)
  Receive Date: 20110724
  Receipt Date: 20110712
  Transmission Date: 20111222
  Serious: Yes (Hospitalization, Other)
  Sender: FDA-Public Use
  Company Number: US-AMGEN-USASP2011035440

PATIENT
  Sex: Female

DRUGS (3)
  1. EPOGEN [Suspect]
  2. WHOLE BLOOD [Concomitant]
     Dosage: UNK
  3. EPOGEN [Suspect]
     Indication: PERITONEAL DIALYSIS
     Dosage: 30000 IU, Q2WK
     Dates: start: 20100101

REACTIONS (4)
  - HAEMOGLOBIN DECREASED [None]
  - BLOOD ERYTHROPOIETIN ABNORMAL [None]
  - DRUG INEFFECTIVE [None]
  - HOSPITALISATION [None]
